FAERS Safety Report 15090306 (Version 1)
Quarter: 2018Q2

REPORT INFORMATION
  Report Type: Report from Study
  Country: AU (occurrence: AU)
  Receive Date: 20180629
  Receipt Date: 20180629
  Transmission Date: 20180711
  Serious: Yes (Other)
  Sender: FDA-Public Use
  Company Number: AU-MYLANLABS-2018M1045793

PATIENT
  Age: 43 Year
  Sex: Male

DRUGS (2)
  1. DEXAMETHASONE. [Suspect]
     Active Substance: DEXAMETHASONE
     Indication: IMMUNE THROMBOCYTOPENIC PURPURA
     Dosage: FOR 4 DAYS
     Route: 065
  2. PREDNISOLONE. [Suspect]
     Active Substance: PREDNISOLONE
     Indication: IMMUNE THROMBOCYTOPENIC PURPURA
     Dosage: FOR 5 DAYS
     Route: 065

REACTIONS (10)
  - Weight increased [Unknown]
  - Sleep disorder [Unknown]
  - Headache [Unknown]
  - Disturbance in attention [Unknown]
  - Anxiety [Unknown]
  - Paranoia [Unknown]
  - Affective disorder [Unknown]
  - Cushingoid [Unknown]
  - Fatigue [Unknown]
  - Aggression [Unknown]
